FAERS Safety Report 22895033 (Version 3)
Quarter: 2023Q4

REPORT INFORMATION
  Report Type: Report from Study
  Country: US (occurrence: US)
  Receive Date: 20230901
  Receipt Date: 20231130
  Transmission Date: 20240110
  Serious: Yes (Other)
  Sender: FDA-Public Use
  Company Number: US-DECIPHERA PHARMACEUTICALS LLC-2023US000795

PATIENT
  Age: 51 Year
  Sex: Male

DRUGS (2)
  1. QINLOCK [Suspect]
     Active Substance: RIPRETINIB
     Indication: Gastrointestinal stromal tumour
     Dosage: 150 MILLIGRAM, BID
     Route: 048
     Dates: start: 20201209
  2. QINLOCK [Suspect]
     Active Substance: RIPRETINIB
     Dosage: 150 MILLIGRAM, BID
     Route: 048

REACTIONS (15)
  - Pulmonary oedema [Unknown]
  - Blood bilirubin increased [Recovering/Resolving]
  - Scar [Unknown]
  - Impaired healing [Unknown]
  - Acne [Unknown]
  - Tongue ulceration [Not Recovered/Not Resolved]
  - Jaundice [Recovering/Resolving]
  - Ocular icterus [Recovering/Resolving]
  - Palpitations [Unknown]
  - Peripheral swelling [Not Recovered/Not Resolved]
  - Abdominal distension [Not Recovered/Not Resolved]
  - Gingival bleeding [Unknown]
  - Dry skin [Unknown]
  - Stomatitis [Recovering/Resolving]
  - Extra dose administered [Unknown]
